FAERS Safety Report 17059725 (Version 1)
Quarter: 2019Q4

REPORT INFORMATION
  Report Type: Spontaneous
  Country: US (occurrence: US)
  Receive Date: 20191121
  Receipt Date: 20191121
  Transmission Date: 20200122
  Serious: Yes (Other)
  Sender: FDA-Public Use
  Company Number: US-NOVOPROD-641589

PATIENT
  Age: 76 Year
  Sex: Male

DRUGS (1)
  1. NOVOLOG [Suspect]
     Active Substance: INSULIN ASPART
     Indication: PRODUCT USED FOR UNKNOWN INDICATION
     Dosage: UNK
     Route: 058
     Dates: start: 1999

REACTIONS (4)
  - Blood glucose increased [Recovering/Resolving]
  - Device breakage [Unknown]
  - Pollakiuria [Unknown]
  - pH urine increased [Not Recovered/Not Resolved]

NARRATIVE: CASE EVENT DATE: 20190105
